FAERS Safety Report 7652482-X (Version None)
Quarter: 2011Q3

REPORT INFORMATION
  Report Type: 
  Country: None (occurrence: None)
  Receive Date: 20110801
  Receipt Date: 20110801
  Transmission Date: 20111222
  Serious: Yes (Hospitalization)
  Sender: FDA-Public Use
  Company Number: None

PATIENT
  Age: 21 Year
  Sex: Male
  Weight: 90.7 kg

DRUGS (3)
  1. FLUTICASONE NASAL SPRAY [Concomitant]
  2. IMMUNE GLOBULIN INTRAVENOUS (HUMAN) [Concomitant]
  3. GAMUNEX [Suspect]
     Indication: ENTEROVIRUS INFECTION
     Dosage: 90 GM ONCE DAILY
     Dates: start: 20101028, end: 20101101

REACTIONS (3)
  - PRODUCT QUALITY ISSUE [None]
  - INTRAVASCULAR HAEMOLYSIS [None]
  - INCORRECT DOSE ADMINISTERED [None]
